FAERS Safety Report 5003559-9 (Version None)
Quarter: 2006Q1

REPORT INFORMATION
  Report Type: 
  Country: None (occurrence: None)
  Receive Date: 20060317
  Receipt Date: 20060106
  Transmission Date: 20060701
  Serious: Yes (Other)
  Sender: FDA-Public Use
  Company Number: US-JNJFOC-20060101357

PATIENT
  Age: 32 Year
  Sex: Female

DRUGS (9)
  1. ORTHO EVRA [Suspect]
     Indication: CONTRACEPTION
     Dosage: 1 DOSE(S), 3 IN 4 WEEK, TRANSDERMAL
     Route: 062
  2. ICA-17043 VS. PLACEBO (ALL OTHER THERAPEUTIC PRODUCTS) [Concomitant]
  3. HYDROXYUREA [Concomitant]
  4. OXYCODONE (OXYCODONE) [Concomitant]
  5. OXYCONTIN [Concomitant]
  6. FOLIC ACID [Concomitant]
  7. DILAUDID [Concomitant]
  8. PHENEGRAN (PROMETHAZINE HYDROCHLORIDE) [Concomitant]
  9. BENADRYL [Concomitant]

REACTIONS (3)
  - DRUG EXPOSURE DURING PREGNANCY [None]
  - METRORRHAGIA [None]
  - UNINTENDED PREGNANCY [None]
